FAERS Safety Report 7680934-5 (Version None)
Quarter: 2011Q3

REPORT INFORMATION
  Report Type: 
  Country: None (occurrence: None)
  Receive Date: 20110811
  Receipt Date: 20110811
  Transmission Date: 20111222
  Serious: Yes (Disabling)
  Sender: FDA-Public Use
  Company Number: None

PATIENT
  Age: 80 Year
  Sex: Female

DRUGS (2)
  1. ACTOS [Suspect]
     Indication: DIABETES MELLITUS
     Dosage: TAKE 1 TABLET EVERY DAY
     Dates: start: 20100901, end: 20110701
  2. SIMAVASTATIN [Concomitant]

REACTIONS (1)
  - BLADDER CANCER [None]
